FAERS Safety Report 9385213 (Version 2)
Quarter: 2013Q3

REPORT INFORMATION
  Report Type: Spontaneous
  Country: US (occurrence: None)
  Receive Date: 20130628
  Receipt Date: 20130703
  Transmission Date: 20140515
  Serious: Yes (Other)
  Sender: FDA-Public Use
  Company Number: 2013AP006233

PATIENT
  Age: 58 Year
  Sex: Female

DRUGS (9)
  1. LATANOPROST [Suspect]
     Indication: OCULAR HYPERTENSION
     Route: 047
     Dates: end: 20130616
  2. ISORBIDE [Concomitant]
  3. PLAVIX [Concomitant]
  4. SPIRONOLACTONE [Concomitant]
  5. PRAVASTATIN [Concomitant]
  6. VERAPAMIL [Concomitant]
  7. VITAMIN D [Concomitant]
  8. ASPIRIN [Concomitant]
  9. COQ10 [Concomitant]

REACTIONS (5)
  - Angina pectoris [None]
  - Condition aggravated [None]
  - Sinusitis [None]
  - Neck pain [None]
  - Therapeutic response prolonged [None]
